FAERS Safety Report 20859856 (Version 2)
Quarter: 2022Q2

REPORT INFORMATION
  Report Type: Report from Study
  Country: FR (occurrence: None)
  Receive Date: 20220523
  Receipt Date: 20220627
  Transmission Date: 20220721
  Serious: Yes (Hospitalization)
  Sender: FDA-Public Use
  Company Number: FR-ROCHE-3100016

PATIENT
  Age: 70 Year
  Sex: Female
  Weight: 76 kg

DRUGS (10)
  1. VENETOCLAX [Suspect]
     Active Substance: VENETOCLAX
     Indication: Chronic lymphocytic leukaemia
     Dosage: DATE OF LAST DOSE OF STUDY DRUG ADMIN PRIOR AE WAS ON 23/FEB/2022 (400 MG)
     Route: 048
     Dates: start: 20210414
  2. OBINUTUZUMAB [Suspect]
     Active Substance: OBINUTUZUMAB
     Indication: Chronic lymphocytic leukaemia
     Dosage: START DATE OF MOST RECENT DOSE OF STUDY DRUG PRIOR TO AE WAS 11/AUG/2021
     Route: 042
     Dates: start: 20210317
  3. LEVOTHYROXINE [Concomitant]
     Active Substance: LEVOTHYROXINE
     Indication: Hypothyroidism
     Route: 048
     Dates: start: 2000
  4. ZOMIG [Concomitant]
     Active Substance: ZOLMITRIPTAN
     Indication: Migraine
     Route: 048
  5. ALPRAZOLAM [Concomitant]
     Active Substance: ALPRAZOLAM
     Indication: Anxiety
     Route: 048
  6. VALACYCLOVIR HYDROCHLORIDE [Concomitant]
     Active Substance: VALACYCLOVIR HYDROCHLORIDE
     Indication: Infection prophylaxis
     Route: 048
     Dates: start: 20210318
  7. PERINDOPRIL [Concomitant]
     Active Substance: PERINDOPRIL
     Indication: Hypertension
     Route: 048
     Dates: start: 20211201
  8. BACTRIM [Concomitant]
     Active Substance: SULFAMETHOXAZOLE\TRIMETHOPRIM
     Indication: Infection
     Route: 048
     Dates: start: 20220302
  9. DESLORATADINE [Concomitant]
     Active Substance: DESLORATADINE
     Indication: Urticaria
     Route: 048
     Dates: start: 20220312, end: 20220319
  10. PREDNISONE [Concomitant]
     Active Substance: PREDNISONE
     Indication: Urticaria
     Route: 048
     Dates: start: 20220312, end: 20220319

REACTIONS (1)
  - COVID-19 [Not Recovered/Not Resolved]

NARRATIVE: CASE EVENT DATE: 20220405
